FAERS Safety Report 8307447 (Version 11)
Quarter: 2014Q1

REPORT INFORMATION
  Report Type: Spontaneous
  Country: US (occurrence: US)
  Receive Date: 20111222
  Receipt Date: 20140313
  Transmission Date: 20141002
  Serious: Yes (Life-Threatening, Hospitalization, Congenital Anomaly)
  Sender: FDA-Public Use
  Company Number: US-JNJFOC-20110805733

PATIENT
  Sex: Male

DRUGS (10)
  1. TOPOMAX [Suspect]
     Indication: FOETAL EXPOSURE DURING PREGNANCY
     Route: 064
     Dates: start: 20090109, end: 200906
  2. TOPIRAMATE [Suspect]
     Indication: FOETAL EXPOSURE DURING PREGNANCY
     Route: 064
  3. DROSPIRENONE W/ETHINYLESTRADIOL [Suspect]
     Indication: FOETAL EXPOSURE DURING PREGNANCY
     Route: 064
     Dates: start: 20090520
  4. VENLAFAXINE [Suspect]
     Indication: FOETAL EXPOSURE DURING PREGNANCY
     Route: 064
     Dates: start: 20090520
  5. METOPROLOL SUCCINATE [Suspect]
     Indication: FOETAL EXPOSURE DURING PREGNANCY
     Route: 064
  6. EFFEXOR [Suspect]
     Indication: FOETAL EXPOSURE DURING PREGNANCY
     Route: 064
  7. YAZ [Suspect]
     Indication: FOETAL EXPOSURE DURING PREGNANCY
     Route: 064
  8. VALTREX [Suspect]
     Indication: FOETAL EXPOSURE DURING PREGNANCY
     Route: 064
  9. LABETALOL [Suspect]
     Indication: FOETAL EXPOSURE DURING PREGNANCY
     Route: 064
  10. MULTIVITAMINS W/MINERALS [Concomitant]
     Route: 065

REACTIONS (7)
  - Pierre Robin syndrome [Unknown]
  - Oral cavity fistula [Recovering/Resolving]
  - Hydronephrosis [Recovered/Resolved]
  - Pyelocaliectasis [Not Recovered/Not Resolved]
  - Eustachian tube dysfunction [Recovering/Resolving]
  - Otitis media [Recovered/Resolved]
  - Weight decreased [Recovered/Resolved]
